FAERS Safety Report 4945041-0 (Version None)
Quarter: 2006Q1

REPORT INFORMATION
  Report Type: 
  Country: None (occurrence: None)
  Receive Date: 20060117
  Receipt Date: 20050209
  Transmission Date: 20060701
  Serious: Yes (Hospitalization)
  Sender: FDA-Public Use
  Company Number: A03200500414

PATIENT
  Age: 79 Year
  Sex: Male

DRUGS (4)
  1. PLAVIX [Suspect]
     Indication: CARDIAC DISORDER
     Dosage: 75 MG QD - ORAL
     Route: 048
     Dates: start: 20040301
  2. PLAVIX [Suspect]
     Indication: PROPHYLAXIS
     Dosage: 81 MG QD - ORAL
     Route: 048
  3. GLUCOSAMINE W/CHONDROITIN SULFATES [Concomitant]
  4. TIMOLOL MALEATE [Concomitant]

REACTIONS (3)
  - ANAEMIA [None]
  - GASTRITIS [None]
  - OESOPHAGITIS [None]
